FAERS Safety Report 19179123 (Version 1)
Quarter: 2021Q2

REPORT INFORMATION
  Report Type: Spontaneous
  Country: BR (occurrence: BR)
  Receive Date: 20210426
  Receipt Date: 20210426
  Transmission Date: 20210717
  Serious: Yes (Other)
  Sender: FDA-Public Use
  Company Number: BR-LUPIN PHARMACEUTICALS INC.-2021-05179

PATIENT
  Age: 33 Year
  Sex: Female

DRUGS (2)
  1. GABAPENTIN. [Suspect]
     Active Substance: GABAPENTIN
     Indication: MYOFASCIAL PAIN SYNDROME
     Dosage: UNK
     Route: 065
  2. AMITRIPTYLINE [Suspect]
     Active Substance: AMITRIPTYLINE
     Indication: MYOFASCIAL PAIN SYNDROME
     Dosage: UNK
     Route: 065

REACTIONS (1)
  - Drug ineffective [Unknown]
